FAERS Safety Report 16034020 (Version 1)
Quarter: 2019Q1

REPORT INFORMATION
  Report Type: Spontaneous
  Country: US (occurrence: US)
  Receive Date: 20190305
  Receipt Date: 20190305
  Transmission Date: 20190418
  Serious: No
  Sender: FDA-Public Use
  Company Number: US-IMPAX LABORATORIES, LLC-2018-IPXL-02611

PATIENT
  Age: 78 Year
  Sex: Female
  Weight: 82 kg

DRUGS (5)
  1. METFORMIN [Concomitant]
     Active Substance: METFORMIN HYDROCHLORIDE
     Indication: DIABETES MELLITUS
     Dosage: UNK
     Route: 065
  2. VICTOZA [Concomitant]
     Active Substance: LIRAGLUTIDE
     Indication: DIABETES MELLITUS
     Dosage: UNK
     Route: 065
  3. RASAGILINE. [Concomitant]
     Active Substance: RASAGILINE
     Indication: TREMOR
     Dosage: 1 MG, 1 /DAY
     Route: 065
  4. RYTARY [Suspect]
     Active Substance: CARBIDOPA\LEVODOPA
     Indication: TREMOR
     Dosage: 36.25/145 MG, TWO CAPSULES, THREE TIMES A DAY
     Route: 065
     Dates: start: 20180725, end: 20180728
  5. BASAGLAR [Concomitant]
     Active Substance: INSULIN GLARGINE
     Indication: DIABETES MELLITUS
     Dosage: UNK
     Route: 065

REACTIONS (4)
  - Abdominal discomfort [Recovered/Resolved]
  - Tremor [Not Recovered/Not Resolved]
  - Feeling abnormal [Recovered/Resolved]
  - Headache [Recovered/Resolved]

NARRATIVE: CASE EVENT DATE: 201807
